FAERS Safety Report 17633439 (Version 1)
Quarter: 2020Q2

REPORT INFORMATION
  Report Type: Spontaneous
  Country: CH (occurrence: CH)
  Receive Date: 20200407
  Receipt Date: 20200407
  Transmission Date: 20200713
  Serious: Yes (Other)
  Sender: FDA-Public Use
  Company Number: CH-ASTRAZENECA-2020SE46509

PATIENT
  Age: 14486 Day
  Sex: Male

DRUGS (9)
  1. REMERON [Concomitant]
     Active Substance: MIRTAZAPINE
  2. IMOVANE [Concomitant]
     Active Substance: ZOPICLONE
  3. SINGULAIR [Concomitant]
     Active Substance: MONTELUKAST SODIUM
  4. SEROQUEL [Suspect]
     Active Substance: QUETIAPINE FUMARATE
     Route: 048
     Dates: start: 20190827, end: 20190910
  5. ABILIFY [Concomitant]
     Active Substance: ARIPIPRAZOLE
     Dates: start: 20190924
  6. NEXIUM [Concomitant]
     Active Substance: ESOMEPRAZOLE MAGNESIUM
  7. VENTOLIN [Concomitant]
     Active Substance: ALBUTEROL SULFATE
  8. SEROQUEL [Suspect]
     Active Substance: QUETIAPINE FUMARATE
     Route: 048
     Dates: start: 201906, end: 20190826
  9. SEROQUEL [Suspect]
     Active Substance: QUETIAPINE FUMARATE
     Route: 048
     Dates: start: 20190911, end: 20190923

REACTIONS (1)
  - Electrocardiogram QT prolonged [Recovered/Resolved]

NARRATIVE: CASE EVENT DATE: 20190820
